FAERS Safety Report 19559614 (Version 1)
Quarter: 2021Q3

REPORT INFORMATION
  Report Type: Spontaneous
  Country: US (occurrence: US)
  Receive Date: 20210715
  Receipt Date: 20210715
  Transmission Date: 20211014
  Serious: No
  Sender: FDA-Public Use
  Company Number: None

PATIENT
  Age: 62 Year
  Sex: Female
  Weight: 72.9 kg

DRUGS (2)
  1. WOMEN^S ONE A DAY OVER 50+ [Concomitant]
  2. LOSARTAN POTASSIUM 100 MG GENERIC FOR COZAAR [Suspect]
     Active Substance: LOSARTAN POTASSIUM
     Indication: HYPERTENSION
     Dosage: ?          QUANTITY:30 TABLET(S);?
     Route: 048

REACTIONS (9)
  - Throat tightness [None]
  - Chest discomfort [None]
  - Dyspnoea [None]
  - Throat clearing [None]
  - Gastrooesophageal reflux disease [None]
  - Pharyngeal swelling [None]
  - Nausea [None]
  - Choking [None]
  - Dysphagia [None]

NARRATIVE: CASE EVENT DATE: 20210701
